FAERS Safety Report 6874824-5 (Version None)
Quarter: 2010Q2

REPORT INFORMATION
  Report Type: 
  Country: None (occurrence: None)
  Receive Date: 20100610
  Receipt Date: 20100507
  Transmission Date: 20101027
  Serious: No
  Sender: FDA-Public Use
  Company Number: 2010SP026095

PATIENT
  Sex: Female

DRUGS (4)
  1. SAPHRIS [Suspect]
     Indication: BIPOLAR DISORDER
     Dosage: 10 MG;SL
     Route: 060
     Dates: start: 20100329, end: 20100329
  2. VISTARIL [Concomitant]
  3. AMBIEN [Concomitant]
  4. CYMBALTA [Concomitant]

REACTIONS (2)
  - HYPOAESTHESIA [None]
  - NAUSEA [None]
